FAERS Safety Report 20684900 (Version 1)
Quarter: 2022Q2

REPORT INFORMATION
  Report Type: Other
  Country: NO (occurrence: NO)
  Receive Date: 20220407
  Receipt Date: 20220407
  Transmission Date: 20220721
  Serious: Yes (Other)
  Sender: FDA-Public Use
  Company Number: None

PATIENT
  Age: 38 Year
  Sex: Male

DRUGS (4)
  1. OMNIPAQUE [Suspect]
     Active Substance: IOHEXOL
     Indication: Arthrogram
     Dosage: 5 ML, SINGLE
     Route: 014
     Dates: start: 20220308, end: 20220308
  2. OMNIPAQUE [Suspect]
     Active Substance: IOHEXOL
     Indication: Product used for unknown indication
  3. BUPIVACAINE HYDROCHLORIDE [Suspect]
     Active Substance: BUPIVACAINE HYDROCHLORIDE
     Indication: Arthrogram
     Dosage: 5 ML
     Route: 014
     Dates: start: 20220308, end: 20220308
  4. DOTAREM [Suspect]
     Active Substance: GADOTERATE MEGLUMINE
     Indication: Arthrogram
     Dosage: 5 ML OF A DILUTED SOLUTION (1.5 ML DILUTED IN 100 ML NACL)
     Route: 014
     Dates: start: 20220308, end: 20220308

REACTIONS (4)
  - Syncope [Unknown]
  - Tachycardia [Unknown]
  - Oedema [Unknown]
  - Rash [Unknown]

NARRATIVE: CASE EVENT DATE: 20220308
